FAERS Safety Report 4895954-3 (Version None)
Quarter: 2006Q1

REPORT INFORMATION
  Report Type: 
  Country: None (occurrence: None)
  Receive Date: 20060125
  Receipt Date: 20060112
  Transmission Date: 20060701
  Serious: Yes (Death, Other)
  Sender: FDA-Public Use
  Company Number: 2005162296

PATIENT
  Age: 53 Year
  Sex: Female
  Weight: 55 kg

DRUGS (10)
  1. PHARMORUBICIN RTU (EPIRUBICIN HYDROCHLORIDE) [Suspect]
     Indication: BREAST CANCER RECURRENT
     Dosage: 100 MG (1 IN 1 D), INTRAVENOUS
     Route: 042
     Dates: start: 20050929, end: 20051027
  2. CYCLOPHOSPHAMIDE [Suspect]
     Indication: BREAST CANCER
     Dosage: 850 MG (1 IN 1 D), INTRAVENOUS
     Route: 042
     Dates: start: 20050929, end: 20051027
  3. HYSRON (MEDROXYPROGESTERONE ACETATE) [Concomitant]
  4. KYTRIL [Concomitant]
  5. DECADRON [Concomitant]
  6. MS CONTIN [Concomitant]
  7. ENALAPRIL MALEATE [Concomitant]
  8. MAGNESIUM OXIDE (MAGNESIUM OXIDE) [Concomitant]
  9. ALOSENN (ACHILLEA, RUBIA ROOT TINCTURE, SENNA FRUIT, SENNA LEAF, TARAX [Concomitant]
  10. AREDIA [Concomitant]

REACTIONS (14)
  - BLOOD PRESSURE DECREASED [None]
  - BODY TEMPERATURE INCREASED [None]
  - CARDIAC ARREST [None]
  - CARDIAC FAILURE [None]
  - CHEST PAIN [None]
  - DIARRHOEA [None]
  - DYSPNOEA [None]
  - FAECAL VOLUME INCREASED [None]
  - HEART RATE DECREASED [None]
  - LYMPHANGIOSIS CARCINOMATOSA [None]
  - NEUTROPENIA [None]
  - RESPIRATORY FAILURE [None]
  - THROMBOCYTOPENIA [None]
  - WHITE BLOOD CELL COUNT DECREASED [None]
